FAERS Safety Report 6716582-0 (Version None)
Quarter: 2010Q2

REPORT INFORMATION
  Report Type: 
  Country: None (occurrence: None)
  Receive Date: 20100507
  Receipt Date: 20100427
  Transmission Date: 20101027
  Serious: Yes (Other)
  Sender: FDA-Public Use
  Company Number: US-ABBOTT-10P-163-0641266-00

PATIENT
  Sex: Female
  Weight: 40.86 kg

DRUGS (1)
  1. SYNTHROID [Suspect]
     Indication: THYROIDECTOMY
     Dosage: AT HOUR OF SLEEP-ADJUSTED TO DIFFERENT DOSES MANY TIMES BUT PATIENT DECLINED TO ELABORATE
     Route: 048
     Dates: start: 19880101

REACTIONS (4)
  - FEELING ABNORMAL [None]
  - HYSTERECTOMY [None]
  - OEDEMA PERIPHERAL [None]
  - UTERINE DILATION AND CURETTAGE [None]
